FAERS Safety Report 24298942 (Version 12)
Quarter: 2025Q1

REPORT INFORMATION
  Report Type: Spontaneous
  Country: US (occurrence: US)
  Receive Date: 20240909
  Receipt Date: 20250311
  Transmission Date: 20250409
  Serious: Yes (Other)
  Sender: KYOWA
  Company Number: US-KYOWAKIRIN-2024KK020710

PATIENT

DRUGS (10)
  1. CRYSVITA [Suspect]
     Active Substance: BUROSUMAB-TWZA
     Indication: Hereditary hypophosphataemic rickets
     Dosage: 30 MG, 1X/2 WEEKS
     Route: 058
  2. CRYSVITA [Suspect]
     Active Substance: BUROSUMAB-TWZA
     Dosage: 60 MG, 1X/4 WEEKS (INJECT 60 MG UNDER  THE SKIN)
     Route: 058
  3. CRYSVITA [Suspect]
     Active Substance: BUROSUMAB-TWZA
     Route: 058
  4. CRYSVITA [Suspect]
     Active Substance: BUROSUMAB-TWZA
     Indication: Hereditary hypophosphataemic rickets
     Dosage: 40 MG, 1X/2 WEEKS INJECT 40 MG (2 ML) UNDER THE SKIN
     Route: 058
  5. CRYSVITA [Suspect]
     Active Substance: BUROSUMAB-TWZA
     Dosage: 40 MG, 1X/2 WEEKS  INJECT 40 MG (2 ML) UNDER THE SKIN
     Route: 058
  6. TUMS ULTRA [Concomitant]
     Active Substance: CALCIUM CARBONATE
     Indication: Product used for unknown indication
     Route: 065
  7. CALCITRIOL [Concomitant]
     Active Substance: CALCITRIOL
     Indication: Product used for unknown indication
     Route: 065
  8. METHOCARBAMOL [Concomitant]
     Active Substance: METHOCARBAMOL
     Indication: Product used for unknown indication
     Route: 065
  9. MAGNESIUM [Concomitant]
     Active Substance: MAGNESIUM
     Indication: Product used for unknown indication
     Route: 065
  10. VITAMIN D2 [Concomitant]
     Active Substance: ERGOCALCIFEROL
     Indication: Product used for unknown indication
     Route: 065

REACTIONS (46)
  - Rickets [Unknown]
  - Neuropathy peripheral [Unknown]
  - Dyspnoea exertional [Unknown]
  - Pain in jaw [Unknown]
  - Loss of personal independence in daily activities [Unknown]
  - Tinnitus [Unknown]
  - Mobility decreased [Unknown]
  - Seasonal allergy [Unknown]
  - Muscle twitching [Unknown]
  - Skin exfoliation [Unknown]
  - Dry skin [Unknown]
  - Sleep disorder [Unknown]
  - Vomiting [Unknown]
  - Arthralgia [Unknown]
  - Fatigue [Not Recovered/Not Resolved]
  - Migraine [Unknown]
  - Productive cough [Unknown]
  - Arthralgia [Unknown]
  - Blepharospasm [Unknown]
  - Walking aid user [Unknown]
  - Feeling abnormal [Unknown]
  - Lethargy [Unknown]
  - Gait disturbance [Unknown]
  - Abdominal pain [Unknown]
  - Pruritus [Unknown]
  - Drug hypersensitivity [Unknown]
  - Agitation [Unknown]
  - Abdominal pain [Unknown]
  - Fatigue [Unknown]
  - Pain [Not Recovered/Not Resolved]
  - Nausea [Unknown]
  - Injection site pruritus [Unknown]
  - Toothache [Not Recovered/Not Resolved]
  - Hypersensitivity [Unknown]
  - Restless legs syndrome [Not Recovered/Not Resolved]
  - Back pain [Unknown]
  - Vitamin D decreased [Unknown]
  - Muscle spasms [Not Recovered/Not Resolved]
  - Muscle spasms [Not Recovered/Not Resolved]
  - Muscle spasms [Recovering/Resolving]
  - Injection site pain [Unknown]
  - Injection site reaction [Unknown]
  - Headache [Unknown]
  - Therapy interrupted [Unknown]
  - Therapeutic response shortened [Unknown]
  - Inappropriate schedule of product administration [Unknown]

NARRATIVE: CASE EVENT DATE: 20241201
